FAERS Safety Report 8183770-9 (Version None)
Quarter: 2012Q1

REPORT INFORMATION
  Report Type: 
  Country: None (occurrence: None)
  Receive Date: 20120305
  Receipt Date: 20120302
  Transmission Date: 20120608
  Serious: Yes (Hospitalization)
  Sender: FDA-Public Use
  Company Number: PHHO1995DE03459

PATIENT
  Sex: Male
  Weight: 112 kg

DRUGS (5)
  1. ADALAT [Concomitant]
     Route: 048
     Dates: start: 19950713
  2. METHYLPREDNISOLONE [Concomitant]
     Route: 048
     Dates: start: 19950713
  3. NEORAL [Suspect]
     Route: 048
     Dates: start: 19941120
  4. AZATHIOPRINE SODIUM [Concomitant]
     Route: 048
     Dates: start: 19950713
  5. TENORMIN [Concomitant]
     Route: 048
     Dates: start: 19950504

REACTIONS (2)
  - HEPATIC ENZYME INCREASED [None]
  - TRANSPLANT REJECTION [None]
